FAERS Safety Report 8340137-8 (Version None)
Quarter: 2012Q2

REPORT INFORMATION
  Report Type: 
  Country: None (occurrence: None)
  Receive Date: 20120507
  Receipt Date: 20120425
  Transmission Date: 20120825
  Serious: Yes (Hospitalization)
  Sender: FDA-Public Use
  Company Number: US-SANOFI-AVENTIS-2012SA029375

PATIENT
  Age: 77 Year
  Sex: Male
  Weight: 81.6 kg

DRUGS (1)
  1. PLAVIX [Suspect]
     Route: 048
     Dates: start: 20110501, end: 20120301

REACTIONS (7)
  - PAIN IN EXTREMITY [None]
  - APATHY [None]
  - INSOMNIA [None]
  - TRANSIENT ISCHAEMIC ATTACK [None]
  - GAIT DISTURBANCE [None]
  - BURNING SENSATION [None]
  - ASTHENIA [None]
